FAERS Safety Report 25377194 (Version 1)
Quarter: 2025Q2

REPORT INFORMATION
  Report Type: Spontaneous
  Country: US (occurrence: US)
  Receive Date: 20250530
  Receipt Date: 20250530
  Transmission Date: 20250717
  Serious: Yes (Other)
  Sender: AMGEN
  Company Number: US-AMGEN-USASP2025101437

PATIENT
  Age: 66 Year
  Sex: Female

DRUGS (3)
  1. REPATHA [Suspect]
     Active Substance: EVOLOCUMAB
     Indication: Blood cholesterol abnormal
     Dosage: 140 MILLIGRAM, Q2WK
     Route: 065
     Dates: start: 2019
  2. FENOFIBRATE [Concomitant]
     Active Substance: FENOFIBRATE
  3. EZETIMIBE [Concomitant]
     Active Substance: EZETIMIBE

REACTIONS (7)
  - Knee operation [Unknown]
  - Vascular occlusion [Unknown]
  - Product storage error [Unknown]
  - Intercepted product administration error [Unknown]
  - Lipid metabolism disorder [Unknown]
  - Muscular weakness [Unknown]
  - Blood creatine phosphokinase increased [Unknown]

NARRATIVE: CASE EVENT DATE: 20230301
